FAERS Safety Report 11988737 (Version 2)
Quarter: 2016Q1

REPORT INFORMATION
  Report Type: Spontaneous
  Country: US (occurrence: US)
  Receive Date: 20160202
  Receipt Date: 20160318
  Transmission Date: 20160526
  Serious: Yes (Hospitalization)
  Sender: FDA-Public Use
  Company Number: US-009507513-1601USA009817

PATIENT
  Age: 51 Year
  Sex: Male

DRUGS (2)
  1. CUBICIN [Suspect]
     Active Substance: DAPTOMYCIN
     Indication: CATHETER SITE CELLULITIS
     Dosage: 500 MG, UNK
     Route: 042
     Dates: start: 20150926, end: 20151030
  2. CUBICIN [Suspect]
     Active Substance: DAPTOMYCIN
     Indication: STAPHYLOCOCCAL INFECTION
     Dosage: 350 MG, UNK
     Route: 042
     Dates: start: 20150813, end: 20150819

REACTIONS (2)
  - Removal of foreign body [Unknown]
  - Cellulitis [Unknown]

NARRATIVE: CASE EVENT DATE: 20150912
